FAERS Safety Report 4943198-9 (Version None)
Quarter: 2006Q1

REPORT INFORMATION
  Report Type: 
  Country: None (occurrence: None)
  Receive Date: 20060314
  Receipt Date: 20051104
  Transmission Date: 20060701
  Serious: Yes (Hospitalization)
  Sender: FDA-Public Use
  Company Number: US-MERCK-0511USA00978

PATIENT
  Age: 62 Year
  Sex: Male
  Weight: 84 kg

DRUGS (6)
  1. VIOXX [Suspect]
     Indication: BACK PAIN
     Route: 048
     Dates: start: 19990901, end: 20040901
  2. NEURONTIN [Concomitant]
     Route: 065
  3. HYZAAR [Concomitant]
     Route: 065
  4. PRAVACHOL [Concomitant]
     Route: 065
  5. ASTELIN [Concomitant]
     Route: 065
  6. GLUCOSAMINE [Concomitant]
     Route: 065

REACTIONS (19)
  - ACUTE SINUSITIS [None]
  - ANHEDONIA [None]
  - ANXIETY [None]
  - ARTHROPATHY [None]
  - ASPARTATE AMINOTRANSFERASE INCREASED [None]
  - BACK DISORDER [None]
  - CARDIOVASCULAR DISORDER [None]
  - CELLULITIS [None]
  - CORONARY ARTERY DISEASE [None]
  - DERMATITIS CONTACT [None]
  - GASTRITIS [None]
  - HAEMATURIA [None]
  - HEADACHE [None]
  - HYPERSENSITIVITY [None]
  - INJURY [None]
  - JOINT INJURY [None]
  - LIBIDO DECREASED [None]
  - MYOCARDIAL INFARCTION [None]
  - MYOCARDIAL ISCHAEMIA [None]
